FAERS Safety Report 18130185 (Version 1)
Quarter: 2020Q3

REPORT INFORMATION
  Report Type: Spontaneous
  Country: US (occurrence: US)
  Receive Date: 20200810
  Receipt Date: 20200810
  Transmission Date: 20201103
  Serious: No
  Sender: FDA-Public Use
  Company Number: None

PATIENT
  Age: 82 Year
  Sex: Male
  Weight: 132.9 kg

DRUGS (21)
  1. LISONOPRIL [Concomitant]
  2. VITAMIN E BLEND [Concomitant]
  3. ATORVASTATIN [Concomitant]
     Active Substance: ATORVASTATIN
  4. COLCHICINE. [Concomitant]
     Active Substance: COLCHICINE
  5. LORATIDINE [Concomitant]
     Active Substance: LORATADINE
  6. ERLEADA [Suspect]
     Active Substance: APALUTAMIDE
     Indication: PROSTATE CANCER
     Route: 048
     Dates: start: 20181015
  7. LUPRON DEPOT [Concomitant]
     Active Substance: LEUPROLIDE ACETATE
  8. TAMSULOSIN [Concomitant]
     Active Substance: TAMSULOSIN
  9. TYLENOL [Concomitant]
     Active Substance: ACETAMINOPHEN
  10. ZOLPIDEM TARTRATE. [Concomitant]
     Active Substance: ZOLPIDEM TARTRATE
  11. CASODEX [Concomitant]
     Active Substance: BICALUTAMIDE
  12. GLUCOSAMINE [Concomitant]
     Active Substance: GLUCOSAMINE
  13. LORAZEPAM. [Concomitant]
     Active Substance: LORAZEPAM
  14. ECONAZOLE NITRATE. [Concomitant]
     Active Substance: ECONAZOLE NITRATE
  15. FLONASE [Concomitant]
     Active Substance: FLUTICASONE PROPIONATE
  16. ASPIRIN 81 [Concomitant]
     Active Substance: ASPIRIN
  17. OXYCODONE HYDROCHLORIDE. [Concomitant]
     Active Substance: OXYCODONE HYDROCHLORIDE
  18. AUGMENTIN [Concomitant]
     Active Substance: AMOXICILLIN\CLAVULANATE POTASSIUM
  19. ELIGARD [Concomitant]
     Active Substance: LEUPROLIDE ACETATE
  20. MULTI VITAMIN [Concomitant]
     Active Substance: VITAMINS
  21. MUPIROCIN. [Concomitant]
     Active Substance: MUPIROCIN

REACTIONS (5)
  - Taste disorder [None]
  - Arthralgia [None]
  - Fatigue [None]
  - Chest pain [None]
  - Insomnia [None]

NARRATIVE: CASE EVENT DATE: 20200810
